FAERS Safety Report 16716596 (Version 2)
Quarter: 2021Q1

REPORT INFORMATION
  Report Type: Other
  Country: US (occurrence: US)
  Receive Date: 20190819
  Receipt Date: 20210325
  Transmission Date: 20210419
  Serious: Yes (Other)
  Sender: FDA-Public Use
  Company Number: US-ROCHE-2379433

PATIENT
  Age: 14 Year
  Sex: Female

DRUGS (16)
  1. GANCICLOVIR. [Suspect]
     Active Substance: GANCICLOVIR
     Dosage: SINCE DAY 266
     Route: 042
  2. INFLIXIMAB [Suspect]
     Active Substance: INFLIXIMAB
     Indication: PROPHYLAXIS AGAINST TRANSPLANT REJECTION
     Dosage: SINCE DAY 75
     Route: 065
  3. MYCOPHENOLATE MOFETIL. [Suspect]
     Active Substance: MYCOPHENOLATE MOFETIL
     Indication: PROPHYLAXIS AGAINST TRANSPLANT REJECTION
     Dosage: DAY 0 TO DAY 48
     Route: 065
  4. LETERMOVIR [Suspect]
     Active Substance: LETERMOVIR
     Indication: CYTOMEGALOVIRUS VIRAEMIA
     Dosage: DAY 90 TO DAY 99?DAY 99 TO DAY 188?SINCE DAY 210
     Route: 065
  5. BUDESONIDE. [Suspect]
     Active Substance: BUDESONIDE
     Indication: PROPHYLAXIS AGAINST TRANSPLANT REJECTION
     Dosage: DAY 80 TO 90
     Route: 065
  6. TACROLIMUS. [Suspect]
     Active Substance: TACROLIMUS
     Indication: PROPHYLAXIS AGAINST TRANSPLANT REJECTION
     Dosage: SINCE DAY 75
     Route: 065
  7. LETERMOVIR [Suspect]
     Active Substance: LETERMOVIR
     Dosage: DAY 99 TO DAY 188
     Route: 065
  8. METHYLPREDNISOLONE. [Suspect]
     Active Substance: METHYLPREDNISOLONE
     Indication: PROPHYLAXIS AGAINST TRANSPLANT REJECTION
     Dosage: SINCE DAY 90
     Route: 065
  9. GANCICLOVIR. [Suspect]
     Active Substance: GANCICLOVIR
     Dosage: DAY 45
     Route: 042
  10. GANCICLOVIR. [Suspect]
     Active Substance: GANCICLOVIR
     Indication: CYTOMEGALOVIRUS VIRAEMIA
     Route: 042
  11. GANCICLOVIR. [Suspect]
     Active Substance: GANCICLOVIR
     Dosage: DAY 48?90
     Route: 042
  12. FOSCARNET [Suspect]
     Active Substance: FOSCARNET
     Dosage: DAY150 TO 170
     Route: 065
  13. FOSCARNET [Suspect]
     Active Substance: FOSCARNET
     Dosage: DAY 170 TO 188
     Route: 065
  14. CAMPATH [Suspect]
     Active Substance: ALEMTUZUMAB
     Indication: PROPHYLAXIS AGAINST TRANSPLANT REJECTION
     Dosage: SINCE DAY 90
     Route: 065
  15. FOSCARNET [Suspect]
     Active Substance: FOSCARNET
     Indication: CYTOMEGALOVIRUS VIRAEMIA
     Dosage: UNTIL DAY 45
     Route: 065
  16. CYCLOSPORINE. [Suspect]
     Active Substance: CYCLOSPORINE
     Indication: PROPHYLAXIS AGAINST TRANSPLANT REJECTION
     Dosage: DAY 0 TO DAY 75
     Route: 065

REACTIONS (10)
  - Cytomegalovirus enterocolitis [Unknown]
  - Diarrhoea [Unknown]
  - Cytomegalovirus viraemia [Recovering/Resolving]
  - Apoptosis [Unknown]
  - Rectal injury [Unknown]
  - Pyrexia [Unknown]
  - Pathogen resistance [Unknown]
  - Faecal volume increased [Unknown]
  - Human herpesvirus 6 infection [Recovering/Resolving]
  - Transaminases increased [Unknown]
